FAERS Safety Report 7021871-9 (Version None)
Quarter: 2010Q3

REPORT INFORMATION
  Report Type: 
  Country: None (occurrence: None)
  Receive Date: 20100930
  Receipt Date: 20100921
  Transmission Date: 20110219
  Serious: Yes (Hospitalization, Other)
  Sender: FDA-Public Use
  Company Number: US-JNJFOC-20100907056

PATIENT
  Sex: Female
  Weight: 62.6 kg

DRUGS (5)
  1. DURAGESIC-100 [Suspect]
     Indication: BACK PAIN
     Route: 062
  2. DURAGESIC-100 [Suspect]
     Route: 062
  3. SANDOZ FENTANYL TRANSDERMAL SYSTEM [Suspect]
     Indication: BACK PAIN
     Route: 062
  4. XANAX [Concomitant]
     Indication: PAIN
     Route: 048
  5. LYRICA [Concomitant]
     Indication: NEURALGIA
     Route: 048

REACTIONS (3)
  - BACK DISORDER [None]
  - BODY HEIGHT DECREASED [None]
  - PAIN [None]
